FAERS Safety Report 9840996 (Version 1)
Quarter: 2014Q1

REPORT INFORMATION
  Report Type: Spontaneous
  Country: US (occurrence: US)
  Receive Date: 20140124
  Receipt Date: 20140124
  Transmission Date: 20141002
  Serious: Yes (Other)
  Sender: FDA-Public Use
  Company Number: US-ASTELLAS-2014US000585

PATIENT
  Sex: Female
  Weight: 66 kg

DRUGS (1)
  1. VESICARE [Suspect]
     Indication: PRODUCT USED FOR UNKNOWN INDICATION
     Dosage: 1/4 OF A 10MG TABLET, UID/QD
     Route: 048

REACTIONS (5)
  - Wrong technique in drug usage process [Unknown]
  - Underdose [Unknown]
  - Hepatic cancer [Unknown]
  - Neoplasm malignant [Unknown]
  - Brain neoplasm [Unknown]
